FAERS Safety Report 5768034-2 (Version None)
Quarter: 2008Q2

REPORT INFORMATION
  Report Type: 
  Country: None (occurrence: None)
  Receive Date: 20080612
  Receipt Date: 20080604
  Transmission Date: 20081010
  Serious: Yes (Death)
  Sender: FDA-Public Use
  Company Number: JP-ABBOTT-08P-087-0440657-00

PATIENT
  Age: 80 Year
  Sex: Male
  Weight: 40 kg

DRUGS (5)
  1. LEUPROLIDE ACETATE [Suspect]
     Indication: PROSTATE CANCER STAGE IV
     Route: 058
     Dates: start: 20061225, end: 20071015
  2. LEUPROLIDE ACETATE [Suspect]
     Dates: start: 20060831, end: 20061225
  3. BICALUTAMIDE [Concomitant]
     Indication: PROSTATE CANCER STAGE IV
     Route: 048
     Dates: end: 20071001
  4. TAMSULOSIN HCL [Concomitant]
     Indication: DYSURIA
     Route: 048
     Dates: end: 20070523
  5. TAMSULOSIN HCL [Concomitant]
     Route: 048
     Dates: end: 20071001

REACTIONS (4)
  - METASTASES TO LIVER [None]
  - METASTASES TO LUNG [None]
  - METASTASIS [None]
  - PROSTATE CANCER [None]
